FAERS Safety Report 6827869-5 (Version None)
Quarter: 2010Q3

REPORT INFORMATION
  Report Type: 
  Country: None (occurrence: None)
  Receive Date: 20100708
  Receipt Date: 20100708
  Transmission Date: 20110219
  Serious: Yes (Disabling)
  Sender: FDA-Public Use
  Company Number: None

PATIENT
  Age: 86 Year
  Sex: Female
  Weight: 47.6277 kg

DRUGS (2)
  1. AVELOX [Suspect]
     Indication: PNEUMONIA
     Dosage: 400 MG DAILY IV
     Route: 042
     Dates: start: 20100101, end: 20100102
  2. AVELOX [Suspect]
     Indication: SEPSIS
     Dosage: 400 MG DAILY IV
     Route: 042
     Dates: start: 20100101, end: 20100102

REACTIONS (1)
  - HYPOGLYCAEMIA [None]
